FAERS Safety Report 6845678-8 (Version None)
Quarter: 2010Q3

REPORT INFORMATION
  Report Type: 
  Country: None (occurrence: None)
  Receive Date: 20100715
  Receipt Date: 20070821
  Transmission Date: 20110219
  Serious: No
  Sender: FDA-Public Use
  Company Number: US-PFIZER INC-2007071104

PATIENT
  Sex: Male
  Weight: 104.3 kg

DRUGS (4)
  1. CHANTIX [Suspect]
     Indication: SMOKING CESSATION THERAPY
     Dates: start: 20070810
  2. LIPITOR [Concomitant]
  3. MAXZIDE [Concomitant]
  4. ACETYLSALICYLIC ACID [Concomitant]

REACTIONS (3)
  - ABNORMAL DREAMS [None]
  - BACK PAIN [None]
  - FEELING ABNORMAL [None]
